FAERS Safety Report 5861781-3 (Version None)
Quarter: 2008Q3

REPORT INFORMATION
  Report Type: 
  Country: None (occurrence: None)
  Receive Date: 20080827
  Receipt Date: 20080710
  Transmission Date: 20090109
  Serious: No
  Sender: FDA-Public Use
  Company Number: US-ABBOTT-08P-163-0461780-00

PATIENT
  Sex: Female
  Weight: 53.572 kg

DRUGS (2)
  1. NIASPAN [Suspect]
     Indication: DRUG USE FOR UNKNOWN INDICATION
     Route: 048
     Dates: start: 20050801, end: 20050901
  2. NIASPAN [Suspect]
     Route: 048
     Dates: start: 20050901, end: 20051001

REACTIONS (1)
  - HEPATIC ENZYME INCREASED [None]
